FAERS Safety Report 4754901-5 (Version None)
Quarter: 2005Q3

REPORT INFORMATION
  Report Type: 
  Country: None (occurrence: None)
  Receive Date: 20050829
  Receipt Date: 20050819
  Transmission Date: 20060218
  Serious: Yes (Hospitalization)
  Sender: FDA-Public Use
  Company Number: US-MERCK-0508USA03412

PATIENT
  Age: 79 Year
  Sex: Female
  Weight: 57 kg

DRUGS (12)
  1. VIOXX [Suspect]
     Indication: ARTHRITIS
     Route: 048
     Dates: start: 20020101, end: 20020101
  2. LOPRESSOR [Concomitant]
     Route: 065
  3. XALATAN [Concomitant]
     Route: 065
  4. [THERAPY UNSPECIFIED] [Concomitant]
     Route: 065
  5. DYAZIDE [Concomitant]
     Route: 065
  6. LIPITOR [Concomitant]
     Route: 048
  7. FOSAMAX [Concomitant]
     Route: 065
  8. CARDIZEM [Concomitant]
     Route: 065
  9. HYDROCHLOROTHIAZIDE [Concomitant]
     Route: 065
  10. [THERAPY UNSPECIFIED] [Concomitant]
     Route: 048
  11. NIFEDIPINE [Concomitant]
     Route: 065
  12. METOPROLOL [Concomitant]
     Route: 065

REACTIONS (3)
  - CHEST PAIN [None]
  - GASTROOESOPHAGEAL REFLUX DISEASE [None]
  - VENTRICULAR HYPERTROPHY [None]
